FAERS Safety Report 9931608 (Version 1)
Quarter: 2014Q1

REPORT INFORMATION
  Report Type: Spontaneous
  Country: US (occurrence: None)
  Receive Date: 20140227
  Receipt Date: 20140227
  Transmission Date: 20141002
  Serious: No
  Sender: FDA-Public Use
  Company Number: None

PATIENT
  Age: 63 Year
  Sex: Female

DRUGS (1)
  1. FORTEO [Suspect]
     Indication: OSTEOPOROSIS
     Route: 058
     Dates: start: 20131024, end: 20140221

REACTIONS (5)
  - Malaise [None]
  - Dizziness [None]
  - Impaired driving ability [None]
  - Abdominal discomfort [None]
  - Feeling abnormal [None]
